FAERS Safety Report 5292382-6 (Version None)
Quarter: 2007Q2

REPORT INFORMATION
  Report Type: 
  Country: None (occurrence: None)
  Receive Date: 20070410
  Receipt Date: 20070329
  Transmission Date: 20071010
  Serious: Yes (Hospitalization, Other)
  Sender: FDA-Public Use
  Company Number: US-ELI_LILLY_AND_COMPANY-US200602004142

PATIENT
  Age: 83 Year
  Sex: Male

DRUGS (3)
  1. COUMADIN [Concomitant]
     Indication: ANTICOAGULANT THERAPY
     Dosage: 5 MG, DAILY (1/D) MONDAY THROUGH FRIDAY
     Dates: start: 19820101
  2. FORTEO [Suspect]
     Indication: OSTEOPOROSIS
     Dates: start: 20060301
  3. FORTEO [Suspect]
     Dosage: UNK, UNK
     Dates: start: 20051001, end: 20051228

REACTIONS (6)
  - ARRHYTHMIA [None]
  - ASTHENIA [None]
  - CHOLELITHIASIS [None]
  - GAIT DISTURBANCE [None]
  - GALLBLADDER DISORDER [None]
  - JAUNDICE [None]
